FAERS Safety Report 10262129 (Version 1)
Quarter: 2014Q2

REPORT INFORMATION
  Report Type: Spontaneous
  Country: US (occurrence: US)
  Receive Date: 20140626
  Receipt Date: 20140626
  Transmission Date: 20141212
  Serious: Yes (Hospitalization)
  Sender: FDA-Public Use
  Company Number: US-GLAXOSMITHKLINE-A1077855A

PATIENT
  Age: 45 Year
  Sex: Female

DRUGS (11)
  1. ADVAIR [Suspect]
     Indication: CHRONIC OBSTRUCTIVE PULMONARY DISEASE
     Dosage: 1PUFF TWICE PER DAY
     Route: 055
     Dates: start: 2005
  2. CLARITIN [Concomitant]
  3. SUDAFED [Concomitant]
  4. BENADRYL [Concomitant]
  5. NASONEX [Concomitant]
  6. PROAIR HFA [Concomitant]
  7. SPIRIVA [Concomitant]
  8. NORCO [Concomitant]
  9. METOPROLOL [Concomitant]
  10. MELOXICAM [Concomitant]
  11. ZOLOFT [Concomitant]

REACTIONS (5)
  - Lung infection [Unknown]
  - Obesity surgery [Unknown]
  - Bronchitis [Not Recovered/Not Resolved]
  - Candida infection [Recovered/Resolved]
  - Drug dose omission [Unknown]
